FAERS Safety Report 8941457 (Version 6)
Quarter: 2013Q2

REPORT INFORMATION
  Report Type: Spontaneous
  Country: US (occurrence: US)
  Receive Date: 20121203
  Receipt Date: 20130531
  Transmission Date: 20140414
  Serious: Yes (Hospitalization, Other)
  Sender: FDA-Public Use
  Company Number: US-009507513-1207USA00007

PATIENT
  Sex: Female

DRUGS (8)
  1. FOSAMAX [Suspect]
     Indication: OSTEOPENIA
     Dosage: 70 MG, QW
     Route: 048
     Dates: start: 20021113, end: 20080210
  2. FOSAMAX [Suspect]
     Dosage: UNK
     Route: 048
     Dates: start: 20100118
  3. ALENDRONATE SODIUM [Suspect]
     Indication: OSTEOPENIA
     Dosage: 70 MG, UNK
     Route: 048
     Dates: start: 20080430, end: 20081208
  4. COUMADIN [Concomitant]
     Dosage: UNK
     Dates: start: 20010727, end: 2007
  5. ALLEGRA [Concomitant]
     Dosage: UNK
     Dates: start: 20011228, end: 20041225
  6. VITAMINS (UNSPECIFIED) [Concomitant]
  7. ASCORBIC ACID [Concomitant]
     Dosage: UNK
  8. CALCIUM (UNSPECIFIED) [Concomitant]
     Dosage: 500 MG, BID
     Dates: start: 1997, end: 2011

REACTIONS (32)
  - Pulmonary embolism [Recovered/Resolved]
  - Phlebitis [Unknown]
  - Deep vein thrombosis [Not Recovered/Not Resolved]
  - Pulmonary embolism [Unknown]
  - Femur fracture [Recovered/Resolved]
  - Femur fracture [Recovered/Resolved]
  - Rhinitis allergic [Unknown]
  - Bipolar disorder [Unknown]
  - Hyperlipidaemia [Unknown]
  - Arthritis [Unknown]
  - Migraine [Unknown]
  - Blood pressure increased [Unknown]
  - Weight increased [Unknown]
  - Dental operation [Unknown]
  - Hypergammaglobulinaemia benign monoclonal [Unknown]
  - Chondropathy [Unknown]
  - Tendon disorder [Unknown]
  - Periostitis [Unknown]
  - Kyphosis [Unknown]
  - Endodontic procedure [Unknown]
  - Stomatitis [Unknown]
  - Spinal osteoarthritis [Unknown]
  - Wrist fracture [Unknown]
  - Fall [Unknown]
  - Tremor [Unknown]
  - Vascular stent insertion [Unknown]
  - Sinus operation [Unknown]
  - Benign breast neoplasm [Unknown]
  - Benign breast lump removal [Unknown]
  - Back pain [Unknown]
  - Gastrooesophageal reflux disease [Unknown]
  - Diarrhoea [Unknown]
